FAERS Safety Report 9839432 (Version 1)
Quarter: 2014Q1

REPORT INFORMATION
  Report Type: Spontaneous
  Country: DE (occurrence: DE)
  Receive Date: 20140123
  Receipt Date: 20140123
  Transmission Date: 20141002
  Serious: Yes (Other)
  Sender: FDA-Public Use
  Company Number: DE-JNJFOC-20140111274

PATIENT
  Sex: Female

DRUGS (2)
  1. REGAINE FRAUEN [Suspect]
     Indication: ALOPECIA
     Route: 061
     Dates: start: 2009
  2. REGAINE FRAUEN [Suspect]
     Indication: ALOPECIA
     Route: 061

REACTIONS (3)
  - Breast cancer [Unknown]
  - Incorrect dose administered [Unknown]
  - Inappropriate schedule of drug administration [Unknown]
